FAERS Safety Report 6061000-1 (Version None)
Quarter: 2009Q1

REPORT INFORMATION
  Report Type: 
  Country: None (occurrence: None)
  Receive Date: 20090202
  Receipt Date: 20090121
  Transmission Date: 20090719
  Serious: Yes (Death)
  Sender: FDA-Public Use
  Company Number: US-JNJFOC-20090106926

PATIENT
  Sex: Male
  Weight: 119.75 kg

DRUGS (7)
  1. FENTANYL TRANSDERMAL SYSTEM [Suspect]
     Indication: DRUG USE FOR UNKNOWN INDICATION
     Route: 065
  2. LIDOCAINE [Concomitant]
  3. BUPIVACAINE [Concomitant]
  4. DELTA-9-CARBOXY-TETRAHYDROCANNABINOL [Concomitant]
  5. ETHRANE [Concomitant]
  6. CANNABINOIDS [Concomitant]
  7. ALL OTHER THERAPEUTIC PRODUCTS [Concomitant]

REACTIONS (1)
  - HYPOXIA [None]
